FAERS Safety Report 20216477 (Version 2)
Quarter: 2022Q2

REPORT INFORMATION
  Report Type: Spontaneous
  Country: US (occurrence: US)
  Receive Date: 20211222
  Receipt Date: 20220408
  Transmission Date: 20220721
  Serious: No
  Sender: FDA-Public Use
  Company Number: US-MICRO LABS LIMITED-ML2021-02393

PATIENT
  Age: 68 Year
  Sex: Female

DRUGS (3)
  1. CROMOLYN SODIUM [Suspect]
     Active Substance: CROMOLYN SODIUM
     Indication: Mast cell activation syndrome
     Dosage: 4 AMPOULES IN 8 OUNCES, 100 MG/5 ML
     Dates: start: 20210629
  2. Gammagard solution 20 mg [Concomitant]
     Indication: Autoimmune disorder
     Route: 042
  3. Creon 60 mg [Concomitant]
     Indication: Pancreatic disorder
     Dates: start: 20210608

REACTIONS (10)
  - Gait disturbance [Not Recovered/Not Resolved]
  - Drooling [Not Recovered/Not Resolved]
  - Muscular weakness [Not Recovered/Not Resolved]
  - Inappropriate schedule of product administration [Unknown]
  - Disorientation [Not Recovered/Not Resolved]
  - Pruritus [Not Recovered/Not Resolved]
  - Burning sensation [Not Recovered/Not Resolved]
  - Lethargy [Recovered/Resolved]
  - Dizziness [Not Recovered/Not Resolved]
  - Drug ineffective [Unknown]
